FAERS Safety Report 24259201 (Version 1)
Quarter: 2024Q3

REPORT INFORMATION
  Report Type: Spontaneous
  Country: CN (occurrence: None)
  Receive Date: 20240828
  Receipt Date: 20240828
  Transmission Date: 20241017
  Serious: Yes (Other)
  Sender: ASTRAZENECA
  Company Number: 2024A189757

PATIENT
  Age: 71 Year
  Sex: Female

DRUGS (2)
  1. OSIMERTINIB [Suspect]
     Active Substance: OSIMERTINIB
     Indication: Lung adenocarcinoma stage III
     Route: 048
     Dates: start: 201909
  2. BEVACIZUMAB [Concomitant]
     Active Substance: BEVACIZUMAB
     Indication: Lung adenocarcinoma stage III
     Dates: start: 202008

REACTIONS (6)
  - Pulmonary mass [Unknown]
  - Pleural effusion [Unknown]
  - Malignant neoplasm progression [Unknown]
  - Metastases to bone [Unknown]
  - Drug resistance [Unknown]
  - Acquired gene mutation [Unknown]
